FAERS Safety Report 11310547 (Version 2)
Quarter: 2015Q3

REPORT INFORMATION
  Report Type: Spontaneous
  Country: US (occurrence: US)
  Receive Date: 20150724
  Receipt Date: 20150807
  Transmission Date: 20151125
  Serious: Yes (Hospitalization, Other)
  Sender: FDA-Public Use
  Company Number: US-ARIAD-2015US004662

PATIENT
  Sex: Female

DRUGS (9)
  1. LEVOTHYROXINE SODIUM. [Concomitant]
     Active Substance: LEVOTHYROXINE SODIUM
     Indication: PRODUCT USED FOR UNKNOWN INDICATION
  2. LYRICA [Concomitant]
     Active Substance: PREGABALIN
     Indication: PRODUCT USED FOR UNKNOWN INDICATION
  3. FOLIC ACID. [Concomitant]
     Active Substance: FOLIC ACID
     Indication: PRODUCT USED FOR UNKNOWN INDICATION
  4. ICLUSIG [Suspect]
     Active Substance: PONATINIB
     Dosage: 30 MG, QD
     Route: 048
     Dates: start: 20150303
  5. ICLUSIG [Suspect]
     Active Substance: PONATINIB
     Indication: CHRONIC MYELOID LEUKAEMIA
     Dosage: 45 MG, QD
     Route: 048
  6. SERTRALINE [Concomitant]
     Active Substance: SERTRALINE HYDROCHLORIDE
     Indication: PRODUCT USED FOR UNKNOWN INDICATION
  7. VITAMIN D [Concomitant]
     Active Substance: CHOLECALCIFEROL
     Indication: PRODUCT USED FOR UNKNOWN INDICATION
  8. ICLUSIG [Suspect]
     Active Substance: PONATINIB
     Dosage: 45 MG, QD
     Route: 048
     Dates: start: 20150303
  9. ALPRAZOLAM. [Concomitant]
     Active Substance: ALPRAZOLAM
     Indication: PRODUCT USED FOR UNKNOWN INDICATION

REACTIONS (10)
  - Headache [Not Recovered/Not Resolved]
  - Knee arthroplasty [Recovered/Resolved]
  - Dizziness [Recovered/Resolved]
  - Eye haemorrhage [Not Recovered/Not Resolved]
  - Vitreous floaters [Unknown]
  - Ocular hypertension [Not Recovered/Not Resolved]
  - Viral infection [Recovered/Resolved]
  - Blindness transient [Not Recovered/Not Resolved]
  - Pain [Not Recovered/Not Resolved]
  - Peripheral swelling [Not Recovered/Not Resolved]
